FAERS Safety Report 8340438-3 (Version None)
Quarter: 2012Q2

REPORT INFORMATION
  Report Type: 
  Country: None (occurrence: None)
  Receive Date: 20120507
  Receipt Date: 20120507
  Transmission Date: 20120825
  Serious: Yes (Other)
  Sender: FDA-Public Use
  Company Number: None

PATIENT
  Age: 51 Year
  Sex: Female
  Weight: 52.163 kg

DRUGS (1)
  1. NUVIGIL [Suspect]
     Indication: LETHARGY
     Dosage: |DOSAGETEXT: 250MG||STRENGTH: 250MG||FREQ: 1XDAY||ROUTE: ORAL|
     Route: 048
     Dates: start: 20120426, end: 20120426

REACTIONS (4)
  - VOMITING [None]
  - URTICARIA [None]
  - HEADACHE [None]
  - MOVEMENT DISORDER [None]
